FAERS Safety Report 14281848 (Version 1)
Quarter: 2017Q4

REPORT INFORMATION
  Report Type: Spontaneous
  Country: US (occurrence: US)
  Receive Date: 20171213
  Receipt Date: 20171213
  Transmission Date: 20180321
  Serious: No
  Sender: FDA-Public Use
  Company Number: US-PFIZER INC-2017529003

PATIENT
  Sex: Male
  Weight: 92.53 kg

DRUGS (1)
  1. ATROPINE SULFATE/DIPHENOXYLATE HYDROCHLORIDE [Suspect]
     Active Substance: ATROPINE SULFATE\DIPHENOXYLATE HYDROCHLORIDE
     Indication: DIARRHOEA
     Dosage: [ATROPINE SULFATE 0.025MG]/[DIPHENOXYLATE HCL 2.5MG], 2 TABLETS, FOUR TIMES A DAY AS NEEDED
     Dates: start: 1970

REACTIONS (3)
  - Drug ineffective [Unknown]
  - Frequent bowel movements [Unknown]
  - Product use issue [Unknown]
